FAERS Safety Report 14947494 (Version 1)
Quarter: 2018Q2

REPORT INFORMATION
  Report Type: Spontaneous
  Country: US (occurrence: US)
  Receive Date: 20180508
  Receipt Date: 20180508
  Transmission Date: 20180711
  Serious: Yes (Hospitalization)
  Sender: FDA-Public Use
  Company Number: None

PATIENT
  Sex: Female

DRUGS (16)
  1. BUPROPION. [Concomitant]
     Active Substance: BUPROPION
  2. SUCRALFATE. [Concomitant]
     Active Substance: SUCRALFATE
  3. MULTIVITAMIN [Concomitant]
     Active Substance: VITAMINS
  4. PRAVASTATIN. [Concomitant]
     Active Substance: PRAVASTATIN
  5. GABAPENTIN. [Concomitant]
     Active Substance: GABAPENTIN
  6. ALLOPURINOL. [Concomitant]
     Active Substance: ALLOPURINOL
  7. HYDORCO/APAP [Concomitant]
  8. TRAMADOL. [Concomitant]
     Active Substance: TRAMADOL
  9. IBRANCE [Suspect]
     Active Substance: PALBOCICLIB
     Indication: NEOPLASM MALIGNANT
     Route: 048
     Dates: start: 20170802
  10. CRANBERRY. [Concomitant]
     Active Substance: CRANBERRY
  11. NATEGLINIDE. [Concomitant]
     Active Substance: NATEGLINIDE
  12. VITAMIN D3 [Concomitant]
     Active Substance: CHOLECALCIFEROL
  13. PANTOPRAZOLE [Concomitant]
     Active Substance: PANTOPRAZOLE
  14. LETROZOLE. [Concomitant]
     Active Substance: LETROZOLE
  15. ASPIRN [Concomitant]
     Active Substance: ASPIRIN
  16. MAGNESIUM [Concomitant]
     Active Substance: MAGNESIUM

REACTIONS (5)
  - Dyspnoea [None]
  - Muscular weakness [None]
  - Renal disorder [None]
  - Bladder disorder [None]
  - Fall [None]
